FAERS Safety Report 4359129-9 (Version None)
Quarter: 2004Q2

REPORT INFORMATION
  Report Type: 
  Country: None (occurrence: None)
  Receive Date: 20040512
  Receipt Date: 20040403
  Transmission Date: 20050107
  Serious: Yes (Hospitalization)
  Sender: FDA-Public Use
  Company Number: 2004CG00848

PATIENT
  Age: 58 Year
  Sex: Male

DRUGS (2)
  1. XYLOCAINE VISCOUS [Suspect]
     Indication: CARCINOMA
     Dosage: 6 G QD PO
     Route: 048
     Dates: start: 20000101, end: 20030401
  2. XYLOCAINE VISCOUS [Suspect]
     Indication: PHARYNGOLARYNGEAL PAIN
     Dosage: 6 G QD PO
     Route: 048
     Dates: start: 20000101, end: 20030401

REACTIONS (5)
  - ACQUIRED METHAEMOGLOBINAEMIA [None]
  - CYANOSIS [None]
  - MALAISE [None]
  - OVERDOSE [None]
  - SULPHAEMOGLOBINAEMIA [None]
